FAERS Safety Report 19370148 (Version 1)
Quarter: 2021Q2

REPORT INFORMATION
  Report Type: Spontaneous
  Country: IT (occurrence: IT)
  Receive Date: 20210604
  Receipt Date: 20210604
  Transmission Date: 20210717
  Serious: Yes (Hospitalization, Other)
  Sender: FDA-Public Use
  Company Number: IT-AUROBINDO-AUR-APL-2017-07134

PATIENT
  Age: 76 Year
  Sex: Female

DRUGS (2)
  1. SERTRALINE [Suspect]
     Active Substance: SERTRALINE HYDROCHLORIDE
     Indication: DEPRESSED MOOD
     Dosage: UNK
     Route: 065
  2. TRAMADOL HYDROCHLORIDE. [Concomitant]
     Active Substance: TRAMADOL HYDROCHLORIDE
     Indication: PRODUCT USED FOR UNKNOWN INDICATION
     Dosage: UNK
     Route: 065

REACTIONS (11)
  - Pain [Recovered/Resolved]
  - Rales [Recovered/Resolved]
  - Pyrexia [Recovered/Resolved]
  - Vasculitis [Recovered/Resolved]
  - Cough [Recovered/Resolved]
  - Lung consolidation [Recovered/Resolved]
  - Respiratory failure [Recovered/Resolved]
  - Oxygen saturation decreased [Recovered/Resolved]
  - Eosinophilic pneumonia [Recovered/Resolved]
  - Dyspnoea [Recovered/Resolved]
  - Eosinophilia [Recovered/Resolved]

NARRATIVE: CASE EVENT DATE: 2009
